FAERS Safety Report 11163759 (Version 5)
Quarter: 2015Q3

REPORT INFORMATION
  Report Type: Report from Study
  Country: US (occurrence: US)
  Receive Date: 20150604
  Receipt Date: 20150702
  Transmission Date: 20151125
  Serious: Yes (Hospitalization, Other)
  Sender: FDA-Public Use
  Company Number: US-ABBVIE-15P-163-1401437-00

PATIENT
  Age: 60 Year
  Sex: Female

DRUGS (2)
  1. DUOPA [Suspect]
     Active Substance: CARBIDOPA\LEVODOPA
     Indication: PARKINSON^S DISEASE
     Route: 050
     Dates: start: 20150526
  2. DUOPA [Suspect]
     Active Substance: CARBIDOPA\LEVODOPA
     Route: 050
     Dates: start: 201506

REACTIONS (9)
  - Musculoskeletal pain [Unknown]
  - Peritonitis [Recovering/Resolving]
  - Flatulence [Unknown]
  - Stoma site discharge [Unknown]
  - Device leakage [Unknown]
  - Abdominal pain [Unknown]
  - Fungal infection [Unknown]
  - Hypotension [Unknown]
  - Haematemesis [Unknown]

NARRATIVE: CASE EVENT DATE: 20150529
